FAERS Safety Report 4328710-5 (Version None)
Quarter: 2004Q1

REPORT INFORMATION
  Report Type: 
  Country: None (occurrence: None)
  Receive Date: 20040329
  Receipt Date: 20040219
  Transmission Date: 20041129
  Serious: Yes (Hospitalization)
  Sender: FDA-Public Use
  Company Number: 03P-163-0244220-00

PATIENT
  Age: 33 Year
  Sex: Female
  Weight: 112.4921 kg

DRUGS (9)
  1. HUMIRA [Suspect]
     Indication: RHEUMATOID ARTHRITIS
     Dosage: 40 MG, 1 IN 2 WK, SUBCUTANEOUS
     Route: 058
     Dates: start: 20030807, end: 20031119
  2. HUMIRA [Suspect]
     Indication: SYSTEMIC LUPUS ERYTHEMATOSUS
     Dosage: 40 MG, 1 IN 2 WK, SUBCUTANEOUS
     Route: 058
     Dates: start: 20030807, end: 20031119
  3. METHOTREXATE [Concomitant]
  4. MIDRID [Concomitant]
  5. AMITRIPTYLINE HYDROCHLORIDE [Concomitant]
  6. PLAQUENIL [Concomitant]
  7. METOPROLOL SUCCINATE [Concomitant]
  8. INDOMETHACIN [Concomitant]
  9. FOLIC ACID [Concomitant]

REACTIONS (3)
  - CELLULITIS [None]
  - STAPHYLOCOCCAL INFECTION [None]
  - SWEAT GLAND INFECTION [None]
